FAERS Safety Report 8372022-X (Version None)
Quarter: 2012Q2

REPORT INFORMATION
  Report Type: 
  Country: None (occurrence: None)
  Receive Date: 20120518
  Receipt Date: 20120503
  Transmission Date: 20120825
  Serious: Yes (Other)
  Sender: FDA-Public Use
  Company Number: CHPA2012US010369

PATIENT
  Age: 79 Year
  Sex: Female

DRUGS (8)
  1. DIOVAN [Concomitant]
     Dosage: UNK, UNK
  2. NOVOXIL [Concomitant]
     Dosage: UNK, UNK
  3. FEMARA [Concomitant]
     Dosage: UNK, UNK
  4. VITAMINS NOS [Concomitant]
     Dosage: UNK, UNK
  5. SYNTHROID [Concomitant]
     Dosage: UNK, UNK
  6. LEVOXYL [Concomitant]
     Indication: HYPOTHYROIDISM
     Dosage: UNK, UNK
  7. EXCEDRIN EXTRA STRENGTH TABLETS [Suspect]
     Indication: ARTHRITIS
     Dosage: 1 TO 2 DF, QOD
     Route: 048
     Dates: start: 19850101, end: 20120301
  8. TIAVES [Concomitant]
     Dosage: UNK, UNK

REACTIONS (4)
  - UNDERDOSE [None]
  - FATIGUE [None]
  - BREAST CANCER [None]
  - ENERGY INCREASED [None]
